FAERS Safety Report 19305837 (Version 1)
Quarter: 2021Q2

REPORT INFORMATION
  Report Type: Spontaneous
  Country: US (occurrence: US)
  Receive Date: 20210526
  Receipt Date: 20210526
  Transmission Date: 20210717
  Serious: Yes (Other)
  Sender: FDA-Public Use
  Company Number: US-ADVANZ PHARMA-202105003666

PATIENT

DRUGS (1)
  1. HYDROXYCHLOROQUINE [Suspect]
     Active Substance: HYDROXYCHLOROQUINE
     Indication: PRODUCT USED FOR UNKNOWN INDICATION
     Dosage: UNK, PLAQUENIL

REACTIONS (8)
  - Gastric ulcer [Unknown]
  - Aura [Unknown]
  - Fatigue [Unknown]
  - Headache [Unknown]
  - Abdominal pain [Unknown]
  - Urticaria [Unknown]
  - Thrombosis [Unknown]
  - Epistaxis [Unknown]
